FAERS Safety Report 4989532-5 (Version None)
Quarter: 2006Q2

REPORT INFORMATION
  Report Type: 
  Country: None (occurrence: None)
  Receive Date: 20060426
  Receipt Date: 20060410
  Transmission Date: 20061013
  Serious: Yes (Other)
  Sender: FDA-Public Use
  Company Number: US200604001679

PATIENT
  Age: 45 Year
  Sex: Male

DRUGS (5)
  1. CYMBALTA [Suspect]
     Indication: INSOMNIA
     Dosage: 30 MG,  60 MG
     Dates: start: 20051228, end: 20051229
  2. CYMBALTA [Suspect]
     Indication: INSOMNIA
     Dosage: 30 MG,  60 MG
     Dates: start: 20051230, end: 20060320
  3. IBUPROFEN [Concomitant]
  4. LORAZEPAM [Concomitant]
  5. DULCOLAX [Concomitant]

REACTIONS (3)
  - ALANINE AMINOTRANSFERASE INCREASED [None]
  - ASPARTATE AMINOTRANSFERASE INCREASED [None]
  - HEADACHE [None]
